FAERS Safety Report 8537526-5 (Version None)
Quarter: 2012Q3

REPORT INFORMATION
  Report Type: 
  Country: None (occurrence: None)
  Receive Date: 20120712
  Receipt Date: 20120711
  Transmission Date: 20120928
  Serious: Yes (Hospitalization, Other)
  Sender: FDA-Public Use
  Company Number: CL-433-2012

PATIENT
  Age: 24 Year
  Sex: Male

DRUGS (2)
  1. HALOPERIDOL [Suspect]
     Indication: SCHIZOPHRENIA
     Dosage: ORAL
     Route: 048
  2. ILOPERIDONE UNK [Suspect]
     Indication: SCHIZOPHRENIA
     Dosage: 1-4MG BD ORAL-TOTAL 10MG

REACTIONS (2)
  - ANGIOEDEMA [None]
  - RASH ERYTHEMATOUS [None]
